FAERS Safety Report 5447697-5 (Version None)
Quarter: 2007Q3

REPORT INFORMATION
  Report Type: 
  Country: None (occurrence: None)
  Receive Date: 20070910
  Receipt Date: 20070830
  Transmission Date: 20080115
  Serious: Yes (Other)
  Sender: FDA-Public Use
  Company Number: GB-MERCK-0708GBR00135

PATIENT
  Age: 65 Year
  Sex: Male
  Weight: 97 kg

DRUGS (4)
  1. ZETIA [Suspect]
     Route: 048
     Dates: start: 20070711, end: 20070806
  2. ASPIRIN [Concomitant]
     Route: 048
     Dates: start: 20030207
  3. ATENOLOL [Concomitant]
     Route: 048
     Dates: start: 20030207
  4. BENDROFLUMETHIAZIDE [Concomitant]
     Route: 048
     Dates: start: 20030128

REACTIONS (1)
  - ARTHRITIS [None]
